FAERS Safety Report 8004358-6 (Version None)
Quarter: 2011Q4

REPORT INFORMATION
  Report Type: 
  Country: None (occurrence: None)
  Receive Date: 20111223
  Receipt Date: 20111221
  Transmission Date: 20120403
  Serious: No
  Sender: FDA-Public Use
  Company Number: US-BIOGENIDEC-2011BI048354

PATIENT
  Age: 62 Year
  Sex: Female

DRUGS (3)
  1. TYSABRI [Suspect]
     Indication: MULTIPLE SCLEROSIS
     Route: 042
     Dates: start: 20111114
  2. TYSABRI [Suspect]
     Route: 042
     Dates: start: 20071114, end: 20100805
  3. TYSABRI [Suspect]
     Route: 042
     Dates: start: 20050223

REACTIONS (1)
  - INFLUENZA [None]
